FAERS Safety Report 14915655 (Version 1)
Quarter: 2018Q2

REPORT INFORMATION
  Report Type: Spontaneous
  Country: US (occurrence: US)
  Receive Date: 20180501
  Receipt Date: 20180501
  Transmission Date: 20180711
  Serious: No
  Sender: FDA-Public Use
  Company Number: None

PATIENT
  Age: 25 Year
  Sex: Female
  Weight: 60.75 kg

DRUGS (1)
  1. BUPRENORPHINE. [Suspect]
     Active Substance: BUPRENORPHINE
     Indication: DRUG DEPENDENCE
     Dosage: ?          QUANTITY:.5 TABLET(S);?
     Route: 060
     Dates: start: 20180411, end: 20180501

REACTIONS (6)
  - Migraine [None]
  - Drug effect decreased [None]
  - Extra dose administered [None]
  - Product substitution issue [None]
  - Apathy [None]
  - Lethargy [None]

NARRATIVE: CASE EVENT DATE: 20180413
